FAERS Safety Report 6478340-4 (Version None)
Quarter: 2009Q4

REPORT INFORMATION
  Report Type: 
  Country: None (occurrence: None)
  Receive Date: 20091207
  Receipt Date: 20091130
  Transmission Date: 20100525
  Serious: Yes (Hospitalization, Other)
  Sender: FDA-Public Use
  Company Number: CA-BAYER-200916758BCC

PATIENT
  Age: 65 Year
  Sex: Male

DRUGS (5)
  1. ASPIRIN [Suspect]
     Indication: DRUG USE FOR UNKNOWN INDICATION
     Route: 065
  2. BRIVANIB ALANINATE/PLACEBO [Suspect]
     Indication: COLORECTAL CANCER METASTATIC
     Route: 048
     Dates: start: 20090506, end: 20091013
  3. CETUXIMAB [Suspect]
     Indication: COLORECTAL CANCER METASTATIC
     Route: 042
     Dates: start: 20090506, end: 20091013
  4. PREDNISONE [Concomitant]
     Route: 065
  5. ACETAMINOPHEN [Concomitant]
     Route: 065
     Dates: start: 20091101

REACTIONS (7)
  - BODY TEMPERATURE INCREASED [None]
  - LOWER GASTROINTESTINAL HAEMORRHAGE [None]
  - MELAENA [None]
  - OESOPHAGEAL ULCER [None]
  - PYREXIA [None]
  - SYNCOPE [None]
  - UNEVALUABLE EVENT [None]
